FAERS Safety Report 7717306-0 (Version None)
Quarter: 2011Q3

REPORT INFORMATION
  Report Type: 
  Country: None (occurrence: None)
  Receive Date: 20110826
  Receipt Date: 20110826
  Transmission Date: 20111222
  Serious: Yes (Life-Threatening)
  Sender: FDA-Public Use
  Company Number: None

PATIENT
  Sex: Male
  Weight: 95.2554 kg

DRUGS (2)
  1. PRADAXA [Suspect]
     Indication: HEART RATE IRREGULAR
     Dosage: 150 MG 2 TIMES 75 MG 2 TIMES
     Dates: start: 20110311
  2. PRADAXA [Suspect]
     Indication: HEART RATE IRREGULAR
     Dosage: 150 MG 2 TIMES 75 MG 2 TIMES
     Dates: start: 20110721

REACTIONS (1)
  - HAEMORRHAGE [None]
